FAERS Safety Report 6750544-2 (Version None)
Quarter: 2010Q2

REPORT INFORMATION
  Report Type: 
  Country: None (occurrence: None)
  Receive Date: 20100528
  Receipt Date: 20100528
  Transmission Date: 20101027
  Serious: No
  Sender: FDA-Public Use
  Company Number: None

PATIENT
  Age: 52 Year
  Sex: Female
  Weight: 77.1115 kg

DRUGS (2)
  1. CYMBALTA [Suspect]
     Indication: DEPRESSION
     Dosage: 30 MG EVERY OTHER DAY PO
     Route: 048
     Dates: start: 20100415, end: 20100527
  2. CYMBALTA [Suspect]
     Indication: PAIN
     Dosage: 30 MG EVERY OTHER DAY PO
     Route: 048
     Dates: start: 20100415, end: 20100527

REACTIONS (5)
  - DYSPEPSIA [None]
  - HEADACHE [None]
  - NAUSEA [None]
  - VERTIGO [None]
  - WITHDRAWAL SYNDROME [None]
